FAERS Safety Report 8550104-7 (Version None)
Quarter: 2012Q3

REPORT INFORMATION
  Report Type: 
  Country: None (occurrence: None)
  Receive Date: 20120730
  Receipt Date: 20080428
  Transmission Date: 20120928
  Serious: Yes (Other)
  Sender: FDA-Public Use
  Company Number: CO-PFIZER INC-2012180137

PATIENT
  Age: 80 Year
  Sex: Female

DRUGS (4)
  1. GLIBENCLAMIDE [Concomitant]
     Dosage: 5 MG, 1X/DAY
     Route: 065
  2. ACETYLSALICYLIC ACID [Concomitant]
     Dosage: 100 MG, 1X/DAY
     Route: 065
  3. LIPITOR [Suspect]
     Dosage: 10 MG, EACH 4 HOURS
     Route: 065
  4. OLMESARTAN MEDOXOMIL AND HYDROCHLOROTHIZIDE [Suspect]
     Dosage: [OLMESARTAN MEDOXOMIL 20 MG/ HYDROCHLOROTHIAZIDE 12.5 MG], 1X/DAY
     Route: 065

REACTIONS (4)
  - BURNING SENSATION [None]
  - HYPERLIPIDAEMIA [None]
  - ANGIOPATHY [None]
  - PAIN IN EXTREMITY [None]
